FAERS Safety Report 5026431-7 (Version None)
Quarter: 2006Q2

REPORT INFORMATION
  Report Type: 
  Country: None (occurrence: None)
  Receive Date: 20060613
  Receipt Date: 20060613
  Transmission Date: 20061013
  Serious: Yes (Life-Threatening, Hospitalization)
  Sender: FDA-Public Use
  Company Number: None

PATIENT
  Age: 62 Year
  Sex: Male
  Weight: 71.8 kg

DRUGS (7)
  1. LISINOPRIL [Suspect]
  2. VARDENAFIL HCL [Concomitant]
  3. METOPROLOL TARTRATE [Concomitant]
  4. CLOPIDOGREL BISULFATE [Concomitant]
  5. SIMVASTATIN [Concomitant]
  6. ASPIRIN [Concomitant]
  7. ETODOLAC [Concomitant]

REACTIONS (1)
  - ANGIONEUROTIC OEDEMA [None]
